FAERS Safety Report 8979876 (Version 2)
Quarter: 2013Q1

REPORT INFORMATION
  Report Type: Spontaneous
  Country: FR (occurrence: FR)
  Receive Date: 20121221
  Receipt Date: 20130107
  Transmission Date: 20140127
  Serious: Yes (Other)
  Sender: FDA-Public Use
  Company Number: PHHY2012FR117792

PATIENT
  Age: 71 Year
  Sex: Female

DRUGS (7)
  1. ACLASTA [Suspect]
     Indication: OSTEOPOROSIS
     Route: 042
     Dates: start: 20121210
  2. LERCAN [Concomitant]
     Indication: HYPERTENSION
     Route: 048
  3. ESIDREX [Concomitant]
     Indication: HYPERTENSION
     Route: 048
  4. FLECAINE [Concomitant]
     Route: 048
  5. CRESTOR [Concomitant]
     Route: 048
  6. KARDEGIC [Concomitant]
     Route: 048
  7. ASPEGIC [Concomitant]
     Route: 048

REACTIONS (7)
  - Eyelid oedema [Not Recovered/Not Resolved]
  - Groin pain [Not Recovered/Not Resolved]
  - Conjunctival hyperaemia [Recovering/Resolving]
  - Eye pain [Not Recovered/Not Resolved]
  - Miosis [Recovering/Resolving]
  - Intraocular pressure test abnormal [Unknown]
  - Headache [Recovering/Resolving]
